FAERS Safety Report 22212290 (Version 3)
Quarter: 2023Q2

REPORT INFORMATION
  Report Type: Spontaneous
  Country: CN (occurrence: CN)
  Receive Date: 20230414
  Receipt Date: 20230510
  Transmission Date: 20230722
  Serious: Yes (Hospitalization, Other)
  Sender: FDA-Public Use
  Company Number: CN-TASMAN PHARMA, INC.-2023TSM00085

PATIENT
  Sex: Male
  Weight: 3.28 kg

DRUGS (4)
  1. CLOZAPINE [Suspect]
     Active Substance: CLOZAPINE
     Dosage: (MATERNAL DOSE 50 MG DAILY)
     Route: 064
  2. INSULIN ASPART [Concomitant]
     Active Substance: INSULIN ASPART
     Route: 064
  3. INSULIN DETEMIR [Concomitant]
     Active Substance: INSULIN DETEMIR
     Route: 064
  4. FERRIC POLYSACCHARIDE COMPLEX [Concomitant]
     Active Substance: FERRIC POLYSACCHARIDE COMPLEX
     Dosage: UNK
     Route: 064

REACTIONS (5)
  - Coagulation disorder neonatal [Recovered/Resolved]
  - Arrhythmia [Recovered/Resolved]
  - Foetal exposure during pregnancy [Recovered/Resolved]
  - Patent ductus arteriosus [Unknown]
  - Atrial septal defect [Unknown]
